FAERS Safety Report 5025689-8 (Version None)
Quarter: 2006Q2

REPORT INFORMATION
  Report Type: 
  Country: None (occurrence: None)
  Receive Date: 20060608
  Receipt Date: 20060530
  Transmission Date: 20061013
  Serious: Yes (Other)
  Sender: FDA-Public Use
  Company Number: 14126

PATIENT
  Age: 74 Year
  Sex: Male
  Weight: 57.1532 kg

DRUGS (3)
  1. PACLITAXEL [Suspect]
     Indication: LUNG NEOPLASM MALIGNANT
     Dosage: 310 MG PER_CYCLE IV
     Dates: end: 20060522
  2. PACLITAXEL [Suspect]
  3. CARBOPLATIN [Concomitant]

REACTIONS (3)
  - HEART RATE INCREASED [None]
  - HYPOTENSION [None]
  - PALPITATIONS [None]
